FAERS Safety Report 5164156-8 (Version None)
Quarter: 2006Q4

REPORT INFORMATION
  Report Type: 
  Country: None (occurrence: None)
  Receive Date: 20061124
  Receipt Date: 20061024
  Transmission Date: 20070319
  Serious: Yes (Death)
  Sender: FDA-Public Use
  Company Number: IMP_2508_2006

PATIENT
  Age: 43 Year

DRUGS (1)
  1. OXYCODONE HCL [Suspect]
     Dosage: DF

REACTIONS (1)
  - POISONING [None]
